FAERS Safety Report 5266572-2 (Version None)
Quarter: 2007Q1

REPORT INFORMATION
  Report Type: 
  Country: None (occurrence: None)
  Receive Date: 20070315
  Receipt Date: 20070308
  Transmission Date: 20070707
  Serious: Yes (Hospitalization, Other)
  Sender: FDA-Public Use
  Company Number: FR-PFIZER INC-2004065262

PATIENT
  Age: 66 Year
  Sex: Female

DRUGS (5)
  1. ZYRTEC [Suspect]
     Indication: ILL-DEFINED DISORDER
     Dosage: DAILY DOSE:10MG
     Route: 048
     Dates: start: 20040430, end: 20040507
  2. QUINAPRIL HYDROCHLORIDE AND HYDROCHLOROTHIAZDE [Suspect]
     Indication: ESSENTIAL HYPERTENSION
     Dosage: TEXT:0.5 DOSE
     Route: 048
  3. FLUINDIONE [Suspect]
     Indication: PULMONARY EMBOLISM
     Dosage: DAILY DOSE:20MG
     Route: 048
     Dates: start: 20040428, end: 20040501
  4. CLONAZEPAM [Suspect]
     Indication: ILL-DEFINED DISORDER
     Dosage: TEXT:0.5 DOSE
     Route: 048
  5. SOPROL [Suspect]
     Indication: ESSENTIAL HYPERTENSION
     Route: 048

REACTIONS (4)
  - DRUG INEFFECTIVE [None]
  - INTERNATIONAL NORMALISED RATIO DECREASED [None]
  - PROTHROMBIN TIME ABNORMAL [None]
  - PULMONARY EMBOLISM [None]
